FAERS Safety Report 9866804 (Version 1)
Quarter: 2014Q1

REPORT INFORMATION
  Report Type: Report from Study
  Country: DE (occurrence: DE)
  Receive Date: 20140204
  Receipt Date: 20140204
  Transmission Date: 20141002
  Serious: Yes (Hospitalization)
  Sender: FDA-Public Use
  Company Number: DE-AMGEN-DEUCT2014006945

PATIENT
  Age: 64 Year
  Sex: Female
  Weight: 45 kg

DRUGS (3)
  1. PANITUMUMAB [Suspect]
     Indication: OESOPHAGEAL SQUAMOUS CELL CARCINOMA
     Dosage: 396 MG, Q3WK
     Route: 042
     Dates: start: 20130523
  2. CISPLATIN [Concomitant]
     Dosage: 125 MG, Q3WK
     Route: 042
     Dates: start: 20130523
  3. FLUOROURACIL 5 FU [Concomitant]
     Dosage: 5760 MG, Q3WK
     Route: 042
     Dates: start: 20130523

REACTIONS (1)
  - Diarrhoea [Recovered/Resolved]
